FAERS Safety Report 24363245 (Version 1)
Quarter: 2024Q3

REPORT INFORMATION
  Report Type: Spontaneous
  Country: NL (occurrence: NL)
  Receive Date: 20240925
  Receipt Date: 20240925
  Transmission Date: 20241016
  Serious: Yes (Other)
  Sender: MYLAN
  Company Number: NL-VELOXIS PHARMACEUTICALS, INC.-2024-VEL-00486

PATIENT
  Age: 35 Year
  Sex: Male

DRUGS (2)
  1. PREDNISONE [Suspect]
     Active Substance: PREDNISONE
     Indication: Immunosuppressant drug therapy
     Dosage: 10 MILLIGRAM, QD
     Route: 065
  2. TACROLIMUS [Suspect]
     Active Substance: TACROLIMUS
     Indication: Immunosuppressant drug therapy
     Dosage: 15 MILLIGRAM, QD
     Route: 065

REACTIONS (9)
  - Disease recurrence [Unknown]
  - Cutaneous T-cell lymphoma [Recovered/Resolved]
  - Myelosuppression [Unknown]
  - Graft complication [Unknown]
  - Cytomegalovirus infection reactivation [Unknown]
  - Cytomegalovirus colitis [Unknown]
  - Herpes zoster disseminated [Unknown]
  - Herpes zoster [Unknown]
  - BK virus infection [Unknown]

NARRATIVE: CASE EVENT DATE: 20160101
